FAERS Safety Report 6132597-8 (Version None)
Quarter: 2009Q1

REPORT INFORMATION
  Report Type: 
  Country: None (occurrence: None)
  Receive Date: 20090324
  Receipt Date: 20090312
  Transmission Date: 20090719
  Serious: Yes (Other)
  Sender: FDA-Public Use
  Company Number: 1000001769

PATIENT
  Age: 80 Year
  Sex: Female

DRUGS (2)
  1. ESCITALOPRAM [Suspect]
     Indication: DEPRESSION
     Dosage: 5 GTT (5 GTT, 1 IN 1 D), ORAL
     Route: 048
  2. XANAX [Concomitant]

REACTIONS (1)
  - PLEURAL EFFUSION [None]
